FAERS Safety Report 12961089 (Version 5)
Quarter: 2016Q4

REPORT INFORMATION
  Report Type: Report from Study
  Country: BR (occurrence: BR)
  Receive Date: 20161121
  Receipt Date: 20161206
  Transmission Date: 20170207
  Serious: Yes (Life-Threatening, Hospitalization)
  Sender: FDA-Public Use
  Company Number: BR-PFIZER INC-2016532312

PATIENT
  Age: 76 Year
  Sex: Male
  Weight: 106.6 kg

DRUGS (7)
  1. CARBOPLATIN. [Suspect]
     Active Substance: CARBOPLATIN
     Indication: NON-SMALL CELL LUNG CANCER STAGE IV
     Dosage: 598.8 MG, DAY 1 OF EACH OF THE 3 WEEK (21 DAY)
     Route: 042
     Dates: start: 20160915, end: 20161026
  2. ALDACTONE [Concomitant]
     Active Substance: SPIRONOLACTONE
     Indication: CORONARY ARTERY DISEASE
     Dosage: 25 MG, EVERY DAY
     Route: 048
     Dates: start: 1996
  3. SELOZOK [Concomitant]
     Active Substance: METOPROLOL SUCCINATE
     Indication: CORONARY ARTERY DISEASE
     Dosage: 50 MG, EVERY DAY
     Route: 048
     Dates: start: 1996
  4. BEVACIZUMAB [Suspect]
     Active Substance: BEVACIZUMAB
     Indication: NON-SMALL CELL LUNG CANCER STAGE IV
     Dosage: 1615.5 MG, DAY 1 OF EACH OF THE 3 WEEK (21 DAY)
     Route: 042
     Dates: start: 20160915, end: 20161026
  5. ACETYLSALICYLIC ACID [Concomitant]
     Active Substance: ASPIRIN
     Indication: CORONARY ARTERY DISEASE
     Dosage: 100 MG, EVERY DAY
     Route: 048
     Dates: start: 1996
  6. PACLITAXEL. [Suspect]
     Active Substance: PACLITAXEL
     Indication: NON-SMALL CELL LUNG CANCER STAGE IV
     Dosage: 367.15 MG, DAY 1 OF EACH OF THE 3 WEEK (21 DAY)
     Route: 042
     Dates: start: 20160915, end: 20161026
  7. PROPATYLNITRATE [Concomitant]
     Active Substance: PROPATYL NITRATE
     Indication: CORONARY ARTERY DISEASE
     Dosage: 100 MG, EVERY DAY
     Route: 048
     Dates: start: 1996

REACTIONS (1)
  - Sepsis [Not Recovered/Not Resolved]

NARRATIVE: CASE EVENT DATE: 20161114
